FAERS Safety Report 24607019 (Version 1)
Quarter: 2024Q4

REPORT INFORMATION
  Report Type: Report from Study
  Country: IN (occurrence: IN)
  Receive Date: 20241112
  Receipt Date: 20241112
  Transmission Date: 20250114
  Serious: Yes (Hospitalization)
  Sender: ROCHE
  Company Number: IN-ROCHE-10000118570

PATIENT
  Age: 72 Year
  Sex: Female

DRUGS (1)
  1. KADCYLA [Suspect]
     Active Substance: ADO-TRASTUZUMAB EMTANSINE
     Indication: Breast cancer
     Route: 042
     Dates: start: 20220228

REACTIONS (3)
  - Malaise [Unknown]
  - Oral fungal infection [Unknown]
  - Fungal pharyngitis [Unknown]
